FAERS Safety Report 4494935-1 (Version None)
Quarter: 2004Q4

REPORT INFORMATION
  Report Type: 
  Country: None (occurrence: None)
  Receive Date: 20041105
  Receipt Date: 20041105
  Transmission Date: 20050328
  Serious: Yes (Life-Threatening)
  Sender: FDA-Public Use
  Company Number: None

PATIENT
  Sex: Male
  Weight: 84.8226 kg

DRUGS (3)
  1. ERBITUX 100MG IMCLONE/BMS [Suspect]
     Indication: COLON CANCER
     Dosage: 100MG IV OTO
     Route: 042
     Dates: start: 20040924
  2. TYLENOL [Concomitant]
  3. BENADRYL [Concomitant]

REACTIONS (7)
  - BLOOD PRESSURE DECREASED [None]
  - CHEST PAIN [None]
  - FLUSHING [None]
  - HYPERHIDROSIS [None]
  - LOSS OF CONSCIOUSNESS [None]
  - PALLOR [None]
  - PO2 DECREASED [None]
